FAERS Safety Report 14233535 (Version 1)
Quarter: 2017Q4

REPORT INFORMATION
  Report Type: Spontaneous
  Country: CN (occurrence: CN)
  Receive Date: 20171129
  Receipt Date: 20171129
  Transmission Date: 20180321
  Serious: Yes (Other)
  Sender: FDA-Public Use
  Company Number: CN-MYLANLABS-2017M1074601

PATIENT
  Age: 57 Year
  Sex: Female

DRUGS (2)
  1. CISPLATIN. [Suspect]
     Active Substance: CISPLATIN
     Indication: LUNG ADENOCARCINOMA STAGE IV
     Dosage: 2 CYCLES OF 75 MG/M2, 130 MG, ON DAYS 1-4
     Route: 065
     Dates: start: 20050704
  2. VINORELBINE [Suspect]
     Active Substance: VINORELBINE\VINORELBINE TARTRATE
     Indication: LUNG ADENOCARCINOMA STAGE IV
     Dosage: 2 CYCLES OF 25 MG/M2, 40 MG, ON DAYS 1 AND 8
     Route: 065
     Dates: start: 20050704

REACTIONS (2)
  - Bone marrow failure [Unknown]
  - Gastrointestinal disorder [Unknown]
